FAERS Safety Report 25890848 (Version 1)
Quarter: 2025Q4

REPORT INFORMATION
  Report Type: Spontaneous
  Country: US (occurrence: US)
  Receive Date: 20251007
  Receipt Date: 20251007
  Transmission Date: 20260117
  Serious: No
  Sender: ROCHE
  Company Number: US-ROCHE-10000403185

PATIENT

DRUGS (2)
  1. TNKASE [Suspect]
     Active Substance: TENECTEPLASE
     Indication: Pulmonary embolism
     Route: 065
  2. TNKASE [Suspect]
     Active Substance: TENECTEPLASE
     Indication: Deep vein thrombosis

REACTIONS (2)
  - Off label use [Unknown]
  - No adverse event [Unknown]
